FAERS Safety Report 16258462 (Version 1)
Quarter: 2019Q2

REPORT INFORMATION
  Report Type: Spontaneous
  Country: AR (occurrence: AR)
  Receive Date: 20190430
  Receipt Date: 20190430
  Transmission Date: 20190711
  Serious: Yes (Hospitalization, Other)
  Sender: FDA-Public Use
  Company Number: PHHY2019AR082416

PATIENT
  Age: 13 Year
  Sex: Female

DRUGS (8)
  1. TOPIRAMAT [Concomitant]
     Active Substance: TOPIRAMATE
     Indication: PRODUCT USED FOR UNKNOWN INDICATION
     Route: 065
  2. LAMOTRIGINE. [Suspect]
     Active Substance: LAMOTRIGINE
     Indication: PSYCHOMOTOR HYPERACTIVITY
     Dosage: UNK
     Route: 065
  3. LEVOMEPROMAZINE [Concomitant]
     Active Substance: LEVOMEPROMAZINE
     Indication: PRODUCT USED FOR UNKNOWN INDICATION
     Route: 065
  4. RITALIN [Suspect]
     Active Substance: METHYLPHENIDATE HYDROCHLORIDE
     Indication: BIPOLAR DISORDER
  5. RITALIN [Suspect]
     Active Substance: METHYLPHENIDATE HYDROCHLORIDE
     Indication: PSYCHOMOTOR HYPERACTIVITY
     Route: 065
  6. LAPENAX [Suspect]
     Active Substance: CLOZAPINE
     Dosage: 300 MG, BID
     Route: 065
     Dates: start: 201803
  7. LAPENAX [Suspect]
     Active Substance: CLOZAPINE
     Indication: AUTISM SPECTRUM DISORDER
     Dosage: 600 MG, QD
     Route: 065
     Dates: start: 201803
  8. LAMOTRIGINE. [Suspect]
     Active Substance: LAMOTRIGINE
     Indication: BIPOLAR DISORDER

REACTIONS (8)
  - Cholecystitis [Unknown]
  - Vomiting [Unknown]
  - Diarrhoea [Unknown]
  - Coeliac disease [Unknown]
  - Hypotension [Unknown]
  - Gastrointestinal disorder [Recovering/Resolving]
  - Syncope [Unknown]
  - Product use in unapproved indication [Unknown]
